FAERS Safety Report 5602912-X (Version None)
Quarter: 2008Q1

REPORT INFORMATION
  Report Type: 
  Country: None (occurrence: None)
  Receive Date: 20080125
  Receipt Date: 20080103
  Transmission Date: 20080703
  Serious: No
  Sender: FDA-Public Use
  Company Number: US-BOEHRINGER INGELHEIM PHARMACEUTICALS, INC.-2007-BP-24627BP

PATIENT
  Sex: Male

DRUGS (6)
  1. FLOMAX [Suspect]
     Indication: BENIGN PROSTATIC HYPERPLASIA
  2. EMSAM [Concomitant]
  3. LORAZEPAM [Concomitant]
  4. TEMAZEPAM [Concomitant]
  5. ACTOS [Concomitant]
  6. LIPITOR [Concomitant]

REACTIONS (4)
  - BLADDER DISORDER [None]
  - NOCTURIA [None]
  - POLLAKIURIA [None]
  - THERAPEUTIC RESPONSE UNEXPECTED [None]
